FAERS Safety Report 5793257-6 (Version None)
Quarter: 2008Q2

REPORT INFORMATION
  Report Type: 
  Country: None (occurrence: None)
  Receive Date: 20080627
  Receipt Date: 20080620
  Transmission Date: 20081010
  Serious: Yes (Hospitalization)
  Sender: FDA-Public Use
  Company Number: US-AMGEN-US288719

PATIENT
  Sex: Male
  Weight: 80.8 kg

DRUGS (25)
  1. NEULASTA [Suspect]
     Indication: CHEMOTHERAPY
     Route: 058
     Dates: start: 20071207, end: 20071207
  2. NEULASTA [Suspect]
     Route: 058
     Dates: start: 20071221, end: 20071221
  3. NEULASTA [Suspect]
     Route: 058
     Dates: start: 20080104, end: 20080104
  4. NEULASTA [Suspect]
     Route: 058
     Dates: start: 20080118, end: 20080118
  5. RITUXIMAB [Suspect]
     Route: 042
     Dates: start: 20071205, end: 20071205
  6. RITUXIMAB [Suspect]
     Route: 042
     Dates: start: 20071219, end: 20071219
  7. RITUXIMAB [Suspect]
     Route: 042
     Dates: start: 20080102, end: 20080102
  8. RITUXIMAB [Suspect]
     Route: 042
     Dates: start: 20080116, end: 20080116
  9. RITUXIMAB [Suspect]
     Route: 042
     Dates: start: 20080205, end: 20080205
  10. RITUXIMAB [Suspect]
     Route: 065
     Dates: start: 20070501, end: 20070627
  11. RITUXIMAB [Suspect]
     Route: 065
     Dates: start: 20070710, end: 20070710
  12. RITUXIMAB [Suspect]
     Route: 065
     Dates: start: 20070806, end: 20070806
  13. OXALIPLATIN [Suspect]
     Route: 042
     Dates: start: 20071206, end: 20071206
  14. OXALIPLATIN [Suspect]
     Route: 042
     Dates: start: 20071220, end: 20071220
  15. OXALIPLATIN [Suspect]
     Route: 042
     Dates: start: 20080103, end: 20080103
  16. OXALIPLATIN [Suspect]
     Route: 042
     Dates: start: 20080117, end: 20080117
  17. OXALIPLATIN [Suspect]
     Route: 042
     Dates: start: 20080206, end: 20080206
  18. GEMCITABINE [Suspect]
     Route: 042
     Dates: start: 20071206, end: 20071206
  19. GEMCITABINE [Suspect]
     Route: 042
     Dates: start: 20071206, end: 20071206
  20. GEMCITABINE [Suspect]
     Route: 042
     Dates: start: 20071220, end: 20071220
  21. GEMCITABINE [Suspect]
     Route: 042
     Dates: start: 20080103, end: 20080103
  22. GEMCITABINE [Suspect]
     Route: 042
     Dates: start: 20080117, end: 20080117
  23. GEMCITABINE [Suspect]
     Route: 042
     Dates: start: 20080206, end: 20080206
  24. ZOFRAN [Concomitant]
     Route: 065
     Dates: start: 20071201
  25. OXYCODONE HCL [Concomitant]
     Route: 065
     Dates: start: 20080101

REACTIONS (6)
  - GASTROENTERITIS [None]
  - HAEMATOCRIT DECREASED [None]
  - HAEMOGLOBIN DECREASED [None]
  - LYMPHOCYTE PERCENTAGE DECREASED [None]
  - MONOCYTE PERCENTAGE INCREASED [None]
  - WHITE BLOOD CELL COUNT DECREASED [None]
